FAERS Safety Report 4926552-0 (Version None)
Quarter: 2006Q1

REPORT INFORMATION
  Report Type: 
  Country: None (occurrence: None)
  Receive Date: 20060228
  Receipt Date: 20050429
  Transmission Date: 20060701
  Serious: No
  Sender: FDA-Public Use
  Company Number: US-GLAXOSMITHKLINE-A0556341A

PATIENT
  Age: 38 Year
  Sex: Female

DRUGS (5)
  1. LAMICTAL [Suspect]
     Indication: BIPOLAR DISORDER
     Dosage: 50 PER DAY
     Route: 048
  2. RISPERDAL [Concomitant]
  3. DITROPAN [Concomitant]
  4. CLONOPIN [Concomitant]
  5. LITHIUM [Concomitant]

REACTIONS (1)
  - PRURITUS [None]
